FAERS Safety Report 7760735-X (Version None)
Quarter: 2011Q3

REPORT INFORMATION
  Report Type: 
  Country: None (occurrence: None)
  Receive Date: 20110919
  Receipt Date: 20110914
  Transmission Date: 20111222
  Serious: Yes (Other)
  Sender: FDA-Public Use
  Company Number: TW-ROXANE LABORATORIES, INC.-2011-RO-01272RO

PATIENT
  Age: 72 Day

DRUGS (1)
  1. DEXAMETHASONE [Suspect]
     Indication: BRONCHOPULMONARY DYSPLASIA

REACTIONS (1)
  - NEPHROLITHIASIS [None]
